FAERS Safety Report 6441080-1 (Version None)
Quarter: 2009Q4

REPORT INFORMATION
  Report Type: 
  Country: None (occurrence: None)
  Receive Date: 20091113
  Receipt Date: 20091113
  Transmission Date: 20100525
  Serious: Yes (Other)
  Sender: FDA-Public Use
  Company Number: None

PATIENT
  Sex: Female

DRUGS (1)
  1. MIRENA [Suspect]

REACTIONS (4)
  - DEVICE BREAKAGE [None]
  - DEVICE DISLOCATION [None]
  - MENOMETRORRHAGIA [None]
  - UTERINE PERFORATION [None]
